FAERS Safety Report 19499273 (Version 1)
Quarter: 2021Q3

REPORT INFORMATION
  Report Type: Spontaneous
  Country: US (occurrence: US)
  Receive Date: 20210706
  Receipt Date: 20210706
  Transmission Date: 20211014
  Serious: Yes (Other)
  Sender: FDA-Public Use
  Company Number: US-AMNEAL PHARMACEUTICALS-2021-AMRX-01216

PATIENT
  Age: 30 Year
  Sex: Female

DRUGS (6)
  1. ZIDOVUDINE. [Suspect]
     Active Substance: ZIDOVUDINE
     Indication: HIV INFECTION
     Dosage: 2 MILLIGRAM/KILOGRAM, EVERY HOUR
     Route: 042
     Dates: start: 20201002, end: 20201003
  2. EMTRICITABINE AND TENOFOVIR DISOPROXIL FUMARATE [Suspect]
     Active Substance: EMTRICITABINE\TENOFOVIR DISOPROXIL FUMARATE
     Indication: HIV INFECTION
     Dosage: 1 DOSAGE FORM
     Route: 048
     Dates: start: 20200604
  3. RITONAVIR. [Suspect]
     Active Substance: RITONAVIR
     Indication: HIV INFECTION
     Dosage: 1 TABLETS
     Route: 048
     Dates: start: 20200604
  4. ZIDOVUDINE. [Suspect]
     Active Substance: ZIDOVUDINE
     Dosage: 1 MILLIGRAM/KILOGRAM, EVERY HOUR
     Route: 042
     Dates: start: 20201002, end: 20201003
  5. ATAZANAVIR. [Suspect]
     Active Substance: ATAZANAVIR
     Indication: HIV INFECTION
     Dosage: 1 CAPSULES
     Route: 048
     Dates: start: 20200604, end: 20200805
  6. ATAZANAVIR. [Suspect]
     Active Substance: ATAZANAVIR
     Dosage: 400 MILLIGRAM, QD
     Route: 048
     Dates: start: 20200805

REACTIONS (2)
  - Exposure during pregnancy [Unknown]
  - Normal newborn [Unknown]

NARRATIVE: CASE EVENT DATE: 20201003
